FAERS Safety Report 7550624-8 (Version None)
Quarter: 2011Q2

REPORT INFORMATION
  Report Type: 
  Country: None (occurrence: None)
  Receive Date: 20110616
  Receipt Date: 20110604
  Transmission Date: 20111010
  Serious: Yes (Hospitalization, Other)
  Sender: FDA-Public Use
  Company Number: US-PAR PHARMACEUTICAL, INC-2011SCPR003044

PATIENT
  Age: 13 Year
  Sex: Male
  Weight: 53.2 kg

DRUGS (9)
  1. ANTICHOLINESTERASES [Suspect]
     Indication: NEUROMUSCULAR BLOCKADE REVERSAL
     Dosage: UNK, UNKNOWN
     Route: 042
  2. ANTICHOLINERGICS [Suspect]
     Indication: NEUROMUSCULAR BLOCKADE REVERSAL
     Dosage: UNK, UNKNOWN
     Route: 042
  3. ONDANSETRON [Suspect]
     Indication: ANTIEMETIC SUPPORTIVE CARE
     Dosage: UNK, UNKNOWN
     Route: 042
  4. DESFLURANE [Suspect]
     Indication: GENERAL ANAESTHESIA
     Dosage: UNK, UNKNOWN
     Route: 065
  5. NADOLOL [Concomitant]
     Indication: PROPHYLAXIS
     Dosage: 20 MG, BID
     Route: 065
  6. VECURONIUM BROMIDE [Concomitant]
     Indication: NEUROMUSCULAR BLOCKADE
     Dosage: UNK, UNKNOWN
     Route: 065
  7. POTASSIUM SUPPLEMENTS [Concomitant]
     Indication: SUPPLEMENTATION THERAPY
     Dosage: UNK, UNKNOWN
     Route: 065
  8. SEVOFLURANE [Concomitant]
     Indication: GENERAL ANAESTHESIA
     Dosage: UNK, UNKNOWN
     Route: 065
  9. MEXILETINE HYDROCHLORIDE [Concomitant]
     Indication: LONG QT SYNDROME CONGENITAL
     Dosage: 300 MG, UNKNOWN
     Route: 065

REACTIONS (2)
  - VENTRICULAR TACHYCARDIA [None]
  - EXTRASYSTOLES [None]
